FAERS Safety Report 8157751-5 (Version None)
Quarter: 2012Q1

REPORT INFORMATION
  Report Type: 
  Country: None (occurrence: None)
  Receive Date: 20120222
  Receipt Date: 20120217
  Transmission Date: 20120608
  Serious: Yes (Hospitalization)
  Sender: FDA-Public Use
  Company Number: ES-PFIZER INC-2011315605

PATIENT
  Age: 48 Year
  Sex: Male

DRUGS (5)
  1. LYRICA [Suspect]
     Dosage: 150 MG/DAILY
     Route: 048
  2. SPIRONOLACTONE [Suspect]
     Dosage: UNK
  3. LYRICA [Suspect]
     Dosage: 75 MG, 3X/DAY
     Route: 048
  4. TRAZODONE [Concomitant]
  5. LYRICA [Suspect]
     Indication: GENERALISED ANXIETY DISORDER
     Dosage: 25 MG, 1X/DAY
     Route: 048
     Dates: start: 20100601

REACTIONS (4)
  - HEADACHE [None]
  - GYNAECOMASTIA [None]
  - PSYCHOTIC DISORDER [None]
  - BREAST CYST [None]
